FAERS Safety Report 8571291-0 (Version None)
Quarter: 2012Q3

REPORT INFORMATION
  Report Type: 
  Country: None (occurrence: None)
  Receive Date: 20120806
  Receipt Date: 20120726
  Transmission Date: 20120928
  Serious: No
  Sender: FDA-Public Use
  Company Number: US-009507513-1207USA011502

PATIENT

DRUGS (1)
  1. NUVARING [Suspect]
     Indication: CONTRACEPTION
     Dosage: UNK, Q3W
     Route: 067
     Dates: start: 20120719

REACTIONS (2)
  - URINARY TRACT INFECTION [None]
  - PRODUCT QUALITY ISSUE [None]
